FAERS Safety Report 4726948-6 (Version None)
Quarter: 2005Q3

REPORT INFORMATION
  Report Type: 
  Country: None (occurrence: None)
  Receive Date: 20050725
  Receipt Date: 20050725
  Transmission Date: 20060218
  Serious: Yes (Other)
  Sender: FDA-Public Use
  Company Number: None

PATIENT
  Age: 60 Year
  Sex: Male
  Weight: 86.4 kg

DRUGS (9)
  1. RIMANTADINE     100MG      GENEVA [Suspect]
     Indication: INFLUENZA
     Dosage: 100 MG    BID   ORAL
     Route: 048
     Dates: start: 20050520, end: 20050603
  2. RIMANTADINE     100MG      GENEVA [Suspect]
     Indication: PROPHYLAXIS
     Dosage: 100 MG    BID   ORAL
     Route: 048
     Dates: start: 20050520, end: 20050603
  3. MORPHINE SULFATE [Concomitant]
  4. CALCIUM CITRATE [Concomitant]
  5. CHOLECALCIFEROL [Concomitant]
  6. PANTOPRAZOLE [Concomitant]
  7. FEXOFENADINE HCL [Concomitant]
  8. FLUOXETINE [Concomitant]
  9. BUSPIRONE [Concomitant]

REACTIONS (2)
  - PHOTOSENSITIVITY REACTION [None]
  - RASH MACULO-PAPULAR [None]
